FAERS Safety Report 17267754 (Version 2)
Quarter: 2020Q1

REPORT INFORMATION
  Report Type: Spontaneous
  Country: US (occurrence: US)
  Receive Date: 20200114
  Receipt Date: 20200210
  Transmission Date: 20200409
  Serious: No
  Sender: FDA-Public Use
  Company Number: US-PFIZER INC-2020014865

PATIENT
  Sex: Female

DRUGS (3)
  1. BENZONATATE. [Suspect]
     Active Substance: BENZONATATE
     Indication: COUGH
  2. TOBRAMYCIN AND DEXAMETHASONE [Suspect]
     Active Substance: DEXAMETHASONE\TOBRAMYCIN
     Indication: EYE DISORDER
     Dosage: UNK
  3. BENZONATATE. [Suspect]
     Active Substance: BENZONATATE
     Indication: NASOPHARYNGITIS
     Dosage: UNK

REACTIONS (2)
  - Rash [Unknown]
  - Drug ineffective [Unknown]
